FAERS Safety Report 21382029 (Version 1)
Quarter: 2022Q3

REPORT INFORMATION
  Report Type: Spontaneous
  Country: DE (occurrence: DE)
  Receive Date: 20220927
  Receipt Date: 20220927
  Transmission Date: 20221027
  Serious: Yes (Hospitalization)
  Sender: FDA-Public Use
  Company Number: DE-NOVARTISPH-NVSC2022DE216487

PATIENT
  Age: 61 Year
  Sex: Male

DRUGS (4)
  1. OXALIPLATIN [Suspect]
     Active Substance: OXALIPLATIN
     Indication: Product used for unknown indication
     Dosage: UNK
     Route: 065
  2. METOCLOPRAMIDE [Concomitant]
     Active Substance: METOCLOPRAMIDE
     Indication: Product used for unknown indication
     Dosage: 10 MG (REQUIREMENT)
     Route: 065
  3. POLYETHYLENE GLYCOLS [Concomitant]
     Active Substance: POLYETHYLENE GLYCOLS
     Indication: Product used for unknown indication
     Dosage: UNK (REQUIREMENT)
     Route: 065
  4. PANTOPRAZOLE [Concomitant]
     Active Substance: PANTOPRAZOLE
     Indication: Product used for unknown indication
     Dosage: 20 MG, QD (1-0-0-0)
     Route: 065

REACTIONS (12)
  - Acute respiratory failure [Unknown]
  - Chills [Unknown]
  - Tachypnoea [Unknown]
  - General physical health deterioration [Unknown]
  - Tachycardia [Unknown]
  - Condition aggravated [Unknown]
  - Cyanosis [Unknown]
  - Haemoptysis [Unknown]
  - Hypotension [Unknown]
  - Dyspnoea [Unknown]
  - Pyrexia [Unknown]
  - Systemic infection [Unknown]
